FAERS Safety Report 7349690-4 (Version None)
Quarter: 2011Q1

REPORT INFORMATION
  Report Type: 
  Country: None (occurrence: None)
  Receive Date: 20110314
  Receipt Date: 20110307
  Transmission Date: 20110831
  Serious: Yes (Other)
  Sender: FDA-Public Use
  Company Number: DE-ASTRAZENECA-2011SE12871

PATIENT
  Sex: Male

DRUGS (1)
  1. SEROQUEL XR [Suspect]
     Indication: DEPRESSION
     Route: 048
     Dates: start: 20101101, end: 20110306

REACTIONS (5)
  - DRY MOUTH [None]
  - ASTHENIA [None]
  - NAUSEA [None]
  - DIZZINESS [None]
  - HAEMATOCHEZIA [None]
